FAERS Safety Report 13335532 (Version 1)
Quarter: 2017Q1

REPORT INFORMATION
  Report Type: Spontaneous
  Country: CH (occurrence: CH)
  Receive Date: 20170314
  Receipt Date: 20170314
  Transmission Date: 20170428
  Serious: Yes (Hospitalization)
  Sender: FDA-Public Use
  Company Number: PHHY2017CH037389

PATIENT
  Age: 85 Year
  Sex: Male

DRUGS (17)
  1. REMERON [Suspect]
     Active Substance: MIRTAZAPINE
     Indication: PRODUCT USED FOR UNKNOWN INDICATION
     Dosage: 30 MG, QD
     Route: 065
  2. MADOPAR [Suspect]
     Active Substance: BENSERAZIDE HYDROCHLORIDE\LEVODOPA
     Indication: PARKINSON^S DISEASE
     Dosage: 1062.5 MG, QD (FOR A LONG TIME TO 25 NOV 2016: 1062.5 MG/DAILY)
     Route: 065
     Dates: end: 20161125
  3. MACROGOL [Concomitant]
     Active Substance: POLYETHYLENE GLYCOLS
     Indication: PRODUCT USED FOR UNKNOWN INDICATION
     Dosage: UNK (1 BAG/DAILY HAS BEEN ADMINISTERED FOR A LONG TIME)
     Route: 065
  4. PANTOZOL [Concomitant]
     Active Substance: PANTOPRAZOLE SODIUM
     Indication: PRODUCT USED FOR UNKNOWN INDICATION
     Dosage: 40 MG, QD (HAS BEEN ADMINISTERED FOR A LONG TIME)
     Route: 065
  5. STALEVO [Suspect]
     Active Substance: CARBIDOPA\ENTACAPONE\LEVODOPA
     Indication: PRODUCT USED FOR UNKNOWN INDICATION
     Dosage: 1 DF, 5QD (150 MG LEVODOPA/37.5 MG CARBIDOPA/200 MG ENTACAPONE)
     Route: 065
     Dates: start: 20161126
  6. MADOPAR [Suspect]
     Active Substance: BENSERAZIDE HYDROCHLORIDE\LEVODOPA
     Dosage: 62.5 MG, UNK
     Route: 065
     Dates: start: 20161126, end: 20161128
  7. PARAGOL N [Concomitant]
     Indication: PRODUCT USED FOR UNKNOWN INDICATION
     Dosage: 40 ML, QD (HAS BEEN ADMINISTERED FOR A LONG TIME)
     Route: 065
  8. CLOPIN ECO [Suspect]
     Active Substance: CLOZAPINE
     Indication: PRODUCT USED FOR UNKNOWN INDICATION
     Dosage: 12.5 MG, QD
     Route: 065
     Dates: start: 20161202, end: 20161204
  9. REQUIP [Suspect]
     Active Substance: ROPINIROLE HYDROCHLORIDE
     Indication: PRODUCT USED FOR UNKNOWN INDICATION
     Dosage: 2 MG, QD (HAS BEEN ADMINISTERED FOR A LONG TIME)
     Route: 065
  10. DUODART [Concomitant]
     Active Substance: DUTASTERIDE\TAMSULOSIN
     Indication: PRODUCT USED FOR UNKNOWN INDICATION
     Dosage: UNK (0.5 MG DUTASTERIDE/0.4 G TAMSULOSIN) (HAS BEEN ADMINISTERED FOR A LONG TIME)
     Route: 065
  11. FRAGMIN [Concomitant]
     Active Substance: DALTEPARIN SODIUM
     Indication: PRODUCT USED FOR UNKNOWN INDICATION
     Dosage: 10000 IU, QD (0.4ML = 10,000 IU/DAILY)
     Route: 065
     Dates: start: 20161202
  12. DAFALGAN [Concomitant]
     Active Substance: ACETAMINOPHEN
     Indication: PRODUCT USED FOR UNKNOWN INDICATION
     Dosage: 500 MG, QD AS RESERVE MEDICATION
     Route: 065
     Dates: start: 20161202
  13. DUROGESIC [Concomitant]
     Active Substance: FENTANYL
     Indication: BACK PAIN
     Dosage: 12 UG, QH (HAS BEEN USED FOR A LONG TIME)
     Route: 062
  14. KALCIPOS D3 [Concomitant]
     Indication: PRODUCT USED FOR UNKNOWN INDICATION
     Dosage: UNK (500 MG CALCIUM CARBONATE/800 I.U. CHOLECALCIFEROL, HAS BEEN ADMINISTERED FOR A LONG TIME)
     Route: 065
  15. MADOPAR [Suspect]
     Active Substance: BENSERAZIDE HYDROCHLORIDE\LEVODOPA
     Dosage: 125 MG, QD
     Route: 065
     Dates: start: 20161129
  16. CLOPIN ECO [Suspect]
     Active Substance: CLOZAPINE
     Dosage: 25 MG, QD
     Route: 065
     Dates: start: 20161205
  17. MARCOUMAR [Concomitant]
     Active Substance: PHENPROCOUMON
     Indication: PRODUCT USED FOR UNKNOWN INDICATION
     Dosage: 0.025 MG, QD (HAS BEEN USED FOR A LONG TIME)
     Route: 065

REACTIONS (2)
  - Coma scale abnormal [Recovered/Resolved]
  - Somnolence [Recovered/Resolved]

NARRATIVE: CASE EVENT DATE: 20161206
